FAERS Safety Report 17015283 (Version 1)
Quarter: 2019Q4

REPORT INFORMATION
  Report Type: Spontaneous
  Country: US (occurrence: US)
  Receive Date: 20191108
  Receipt Date: 20191108
  Transmission Date: 20200122
  Serious: Yes (Hospitalization)
  Sender: FDA-Public Use
  Company Number: None

PATIENT
  Age: 11 Year
  Sex: Male

DRUGS (3)
  1. SYMDEKO [Suspect]
     Active Substance: IVACAFTOR\TEZACAFTOR
     Indication: CYSTIC FIBROSIS
     Route: 048
     Dates: start: 20190710
  2. PULMOZYME [Concomitant]
     Active Substance: DORNASE ALFA
     Dates: start: 20180529
  3. ZENPEP 20,000 [Concomitant]
     Dates: start: 20180723

REACTIONS (2)
  - Weight decreased [None]
  - Lung disorder [None]

NARRATIVE: CASE EVENT DATE: 20191024
